FAERS Safety Report 14699350 (Version 1)
Quarter: 2018Q1

REPORT INFORMATION
  Report Type: Spontaneous
  Country: US (occurrence: US)
  Receive Date: 20180330
  Receipt Date: 20180330
  Transmission Date: 20180509
  Serious: Yes (Other)
  Sender: FDA-Public Use
  Company Number: US-GLAXOSMITHKLINE-US2018GSK051718

PATIENT
  Sex: Female

DRUGS (3)
  1. LYRICA [Suspect]
     Active Substance: PREGABALIN
     Indication: NEUROPATHY PERIPHERAL
     Dosage: UNK
  2. AVANDIA [Suspect]
     Active Substance: ROSIGLITAZONE MALEATE
     Indication: DIABETES MELLITUS
  3. METOPROLOL. [Suspect]
     Active Substance: METOPROLOL
     Indication: MITRAL VALVE PROLAPSE

REACTIONS (3)
  - Fluid retention [Unknown]
  - Gastric bypass [Unknown]
  - Cardiac failure congestive [Unknown]
